FAERS Safety Report 9469950 (Version 1)
Quarter: 2013Q3

REPORT INFORMATION
  Report Type: Spontaneous
  Country: FR (occurrence: FR)
  Receive Date: 20130822
  Receipt Date: 20130822
  Transmission Date: 20140515
  Serious: Yes (Other)
  Sender: FDA-Public Use
  Company Number: PHHY2013FR090112

PATIENT
  Sex: Female

DRUGS (3)
  1. GILENYA [Suspect]
     Route: 048
     Dates: start: 201306
  2. INIPOMP [Concomitant]
  3. SOLUMEDROL [Concomitant]

REACTIONS (2)
  - Thrombocytopenia [Unknown]
  - Lymphocyte count decreased [Unknown]
